FAERS Safety Report 23707665 (Version 1)
Quarter: 2024Q2

REPORT INFORMATION
  Report Type: Other
  Country: US (occurrence: US)
  Receive Date: 20240404
  Receipt Date: 20240404
  Transmission Date: 20240716
  Serious: Yes (Hospitalization)
  Sender: FDA-Public Use
  Company Number: US-Bion-012776

PATIENT
  Age: 16 Year
  Sex: Female

DRUGS (9)
  1. DEXAMETHASONE [Suspect]
     Active Substance: DEXAMETHASONE
     Indication: Tuberculosis
     Dosage: (0.13 MG/KG/DAY)
  2. ISONIAZID [Concomitant]
     Active Substance: ISONIAZID
     Indication: Tuberculosis
  3. RIFAMPIN [Concomitant]
     Active Substance: RIFAMPIN
     Indication: Tuberculosis
  4. PYRAZINAMIDE [Concomitant]
     Active Substance: PYRAZINAMIDE
     Indication: Tuberculosis
  5. AMIKACIN [Concomitant]
     Active Substance: AMIKACIN
     Indication: Tuberculosis
  6. LEVOFLOXACIN [Concomitant]
     Active Substance: LEVOFLOXACIN
     Indication: Tuberculosis
  7. LINEZOLID [Concomitant]
     Active Substance: LINEZOLID
     Indication: Tuberculosis
  8. INFLIXIMAB [Concomitant]
     Active Substance: INFLIXIMAB
     Indication: Tuberculosis
  9. DEXAMETHASONE [Suspect]
     Active Substance: DEXAMETHASONE
     Indication: Tuberculosis
     Dosage: 0.4 MG/KG/DAY

REACTIONS (1)
  - Rebound effect [Recovering/Resolving]
